FAERS Safety Report 15739860 (Version 1)
Quarter: 2018Q4

REPORT INFORMATION
  Report Type: Spontaneous
  Country: BR (occurrence: BR)
  Receive Date: 20181219
  Receipt Date: 20181219
  Transmission Date: 20190205
  Serious: Yes (Other)
  Sender: FDA-Public Use
  Company Number: BR-SA-2018SA070612

PATIENT
  Age: 36 Year
  Sex: Female
  Weight: 58 kg

DRUGS (2)
  1. CLEXANE [Suspect]
     Active Substance: ENOXAPARIN SODIUM
     Indication: PROPHYLAXIS
     Dosage: 1 DF,QD
     Route: 065
     Dates: start: 201801
  2. NUTRAPLUS [Concomitant]
     Dosage: 1 DF,QD
     Route: 048
     Dates: start: 201710

REACTIONS (5)
  - Product use issue [Unknown]
  - Pre-eclampsia [Unknown]
  - Exposure during pregnancy [Unknown]
  - HELLP syndrome [Unknown]
  - Hypertension [Unknown]
